FAERS Safety Report 17238093 (Version 1)
Quarter: 2020Q1

REPORT INFORMATION
  Report Type: Spontaneous
  Country: US (occurrence: US)
  Receive Date: 20200106
  Receipt Date: 20200106
  Transmission Date: 20200409
  Serious: Yes (Other)
  Sender: FDA-Public Use
  Company Number: US-PACIRA-201900262

PATIENT

DRUGS (2)
  1. HYDROMORPHONE [Concomitant]
     Active Substance: HYDROMORPHONE
     Indication: ANALGESIC THERAPY
     Dosage: 1 MG EVERY 3 HOURS
  2. EXPAREL [Suspect]
     Active Substance: BUPIVACAINE
     Indication: PAIN MANAGEMENT
     Dosage: 100 MILLILITRE WAS INJECTED ON EACH SIDE OF THE LAPAROTOMY INCISION.

REACTIONS (5)
  - Delirium [Unknown]
  - Nausea [Unknown]
  - Vomiting [Unknown]
  - Confusional state [Unknown]
  - Urinary retention [Unknown]
